APPROVED DRUG PRODUCT: BACITRACIN
Active Ingredient: BACITRACIN
Strength: 5,000,000 UNITS/BOT
Dosage Form/Route: POWDER;FOR RX COMPOUNDING
Application: A061699 | Product #001
Applicant: APOTHEKERNES LABORATORIUM A/S
Approved: Approved Prior to Jan 1, 1982 | RLD: No | RS: No | Type: DISCN